FAERS Safety Report 18691620 (Version 6)
Quarter: 2021Q3

REPORT INFORMATION
  Report Type: Report from Study
  Country: None (occurrence: NL)
  Receive Date: 20210101
  Receipt Date: 20210709
  Transmission Date: 20211014
  Serious: Yes (Life-Threatening, Hospitalization, Other)
  Sender: FDA-Public Use
  Company Number: NL-ABBVIE-20K-114-3713997-00

PATIENT
  Sex: Male

DRUGS (3)
  1. LEVODOPA/CARBIDOPA [Suspect]
     Active Substance: CARBIDOPA\LEVODOPA
  2. LEVODOPA/CARBIDOPA [Suspect]
     Active Substance: CARBIDOPA\LEVODOPA
     Indication: PARKINSON^S DISEASE
     Dosage: MD: 7.5 ML, CD: 3.6 ML/H, ED: 1.0 ML
     Route: 050
     Dates: start: 20190617
  3. DUPHALAC [Concomitant]
     Active Substance: LACTULOSE
     Indication: ABNORMAL FAECES

REACTIONS (24)
  - Device use error [Unknown]
  - Memory impairment [Recovered/Resolved]
  - Fall [Unknown]
  - Bowel movement irregularity [Not Recovered/Not Resolved]
  - Device dislocation [Recovered/Resolved]
  - Cardiac disorder [Not Recovered/Not Resolved]
  - Device dislocation [Unknown]
  - Cognitive disorder [Recovered/Resolved]
  - Confusional state [Not Recovered/Not Resolved]
  - Dyspnoea [Not Recovered/Not Resolved]
  - Chest pain [Not Recovered/Not Resolved]
  - Medication error [Not Recovered/Not Resolved]
  - Incorrect route of product administration [Not Recovered/Not Resolved]
  - COVID-19 [Recovered/Resolved]
  - Cognitive disorder [Not Recovered/Not Resolved]
  - Constipation [Not Recovered/Not Resolved]
  - Myocardial infarction [Not Recovered/Not Resolved]
  - Coronary artery occlusion [Not Recovered/Not Resolved]
  - Wrong device used [Not Recovered/Not Resolved]
  - Drug ineffective [Not Recovered/Not Resolved]
  - Confusional state [Recovered/Resolved]
  - Device difficult to use [Unknown]
  - Memory impairment [Not Recovered/Not Resolved]
  - Unevaluable event [Recovering/Resolving]

NARRATIVE: CASE EVENT DATE: 2020
